FAERS Safety Report 12502253 (Version 4)
Quarter: 2016Q4

REPORT INFORMATION
  Report Type: Spontaneous
  Country: JP (occurrence: JP)
  Receive Date: 20160627
  Receipt Date: 20161221
  Transmission Date: 20170207
  Serious: Yes (Death, Hospitalization, Other)
  Sender: FDA-Public Use
  Company Number: PHJP2016JP017715

PATIENT
  Age: 67 Year
  Sex: Male
  Weight: 67.7 kg

DRUGS (11)
  1. STARASID [Suspect]
     Active Substance: CYTARABINE OCFOSFATE
     Indication: ACUTE MYELOID LEUKAEMIA
     Dosage: 200 MG, UNK
     Route: 048
     Dates: start: 20150728, end: 20150811
  2. CONCENTRATED RED CELLS [Concomitant]
     Active Substance: HUMAN RED BLOOD CELL
     Indication: ACUTE MYELOID LEUKAEMIA
     Dosage: 4 IU, UNK
     Route: 041
  3. NITRODERM [Concomitant]
     Active Substance: NITROGLYCERIN
     Indication: MYOCARDIAL INFARCTION
     Dosage: 25 MG, QD
     Route: 061
  4. LANSOPRAZOLE. [Concomitant]
     Active Substance: LANSOPRAZOLE
     Indication: ABDOMINAL PAIN UPPER
  5. EXJADE [Suspect]
     Active Substance: DEFERASIROX
     Indication: ACUTE MYELOID LEUKAEMIA
     Dosage: 500 MG, QD
     Route: 048
     Dates: start: 201307, end: 20150710
  6. CYTARABINE OCFOSFATE [Concomitant]
     Active Substance: CYTARABINE OCFOSFATE
     Indication: PRODUCT USED FOR UNKNOWN INDICATION
     Route: 065
     Dates: start: 201307
  7. CONCENTRATED RED CELLS [Concomitant]
     Active Substance: HUMAN RED BLOOD CELL
     Dosage: 2 TO 4 IU, QMO (MONTHLY)
     Route: 041
  8. PLATELETS [Concomitant]
     Active Substance: HUMAN PLATELET, ALLOGENIC
     Indication: ACUTE MYELOID LEUKAEMIA
     Dosage: 2 TO 4 IU, WEEKLY
     Route: 041
  9. CYTARABINE. [Concomitant]
     Active Substance: CYTARABINE
     Indication: ACUTE MYELOID LEUKAEMIA
     Dosage: UNK
     Route: 065
  10. BUFFERIN [Concomitant]
     Active Substance: ASPIRIN
     Indication: ANGINA PECTORIS
     Dosage: 81 MG, QD
     Route: 048
  11. LANSOPRAZOLE. [Concomitant]
     Active Substance: LANSOPRAZOLE
     Indication: GASTRITIS
     Dosage: 15 MG, QD
     Route: 048
     Dates: start: 2010

REACTIONS (9)
  - Pneumonia [Fatal]
  - Cardiac failure [Fatal]
  - Acute myeloid leukaemia [Unknown]
  - Decreased appetite [Unknown]
  - Anaemia [Unknown]
  - Nausea [Unknown]
  - Influenza [Unknown]
  - Anaphylactic reaction [Unknown]
  - General physical health deterioration [Unknown]

NARRATIVE: CASE EVENT DATE: 2014
